FAERS Safety Report 6938652-4 (Version None)
Quarter: 2010Q3

REPORT INFORMATION
  Report Type: 
  Country: None (occurrence: None)
  Receive Date: 20100824
  Receipt Date: 20100813
  Transmission Date: 20110219
  Serious: Yes (Death)
  Sender: FDA-Public Use
  Company Number: US-BAXTER-2010BH016598

PATIENT
  Age: 74 Year
  Sex: Female

DRUGS (4)
  1. DIANEAL [Suspect]
     Indication: PERITONEAL DIALYSIS
     Route: 033
     Dates: start: 20080501, end: 20100520
  2. DIANEAL [Suspect]
     Route: 033
     Dates: start: 20080501, end: 20100520
  3. EXTRANEAL [Suspect]
     Indication: PERITONEAL DIALYSIS
     Route: 033
     Dates: start: 20080101, end: 20100101
  4. EXTRANEAL [Suspect]
     Route: 033
     Dates: start: 20080101, end: 20100101

REACTIONS (1)
  - DEATH [None]
